FAERS Safety Report 10411335 (Version 1)
Quarter: 2014Q3

REPORT INFORMATION
  Report Type: Report from Study
  Country: ZA (occurrence: ZA)
  Receive Date: 20140826
  Receipt Date: 20140826
  Transmission Date: 20150326
  Serious: Yes (Hospitalization)
  Sender: FDA-Public Use
  Company Number: ZA-BAYER-2014-072146

PATIENT
  Sex: Male

DRUGS (1)
  1. BETAFERON [Suspect]
     Active Substance: INTERFERON BETA-1B
     Dosage: UNK
     Dates: start: 200708

REACTIONS (13)
  - Anxiety [Recovering/Resolving]
  - Adverse drug reaction [None]
  - Depression [None]
  - Hospitalisation [None]
  - Depressed mood [None]
  - Multiple sclerosis relapse [Recovering/Resolving]
  - Multiple sclerosis relapse [Recovering/Resolving]
  - Weight decreased [None]
  - Back pain [None]
  - Influenza like illness [Recovered/Resolved]
  - Bladder disorder [Recovering/Resolving]
  - Gait disturbance [None]
  - Multiple sclerosis relapse [Recovered/Resolved]

NARRATIVE: CASE EVENT DATE: 2007
